FAERS Safety Report 23056267 (Version 1)
Quarter: 2023Q4

REPORT INFORMATION
  Report Type: Spontaneous
  Country: GB (occurrence: GB)
  Receive Date: 20231011
  Receipt Date: 20231011
  Transmission Date: 20240109
  Serious: Yes (Other)
  Sender: FDA-Public Use
  Company Number: None

PATIENT

DRUGS (17)
  1. FEXOFENADINE [Suspect]
     Active Substance: FEXOFENADINE HYDROCHLORIDE
     Indication: Product used for unknown indication
     Dosage: UNSPECIFIED DOSE AND FREQUENCY
     Route: 065
  2. AZACITIDINE [Suspect]
     Active Substance: AZACITIDINE
     Indication: Product used for unknown indication
     Dosage: UNSPECIFIED DOSE AND FREQUENCY
     Route: 058
     Dates: start: 20230720
  3. AZACITIDINE [Suspect]
     Active Substance: AZACITIDINE
     Dosage: 140 MILLIGRAM, QD
     Route: 058
     Dates: start: 20230720
  4. ACYCLOVIR [Suspect]
     Active Substance: ACYCLOVIR
     Indication: Product used for unknown indication
     Dosage: UNSPECIFIED DOSE AND FREQUENCY
     Route: 065
     Dates: start: 20230720
  5. ALLOPURINOL [Suspect]
     Active Substance: ALLOPURINOL
     Indication: Product used for unknown indication
     Dosage: UNK
     Route: 065
     Dates: start: 20230721
  6. DOMPERIDONE [Suspect]
     Active Substance: DOMPERIDONE
     Indication: Product used for unknown indication
     Dosage: UNSPECIFIED DOSE AND FREQUENCY
     Route: 065
  7. MAGROLIMAB [Suspect]
     Active Substance: MAGROLIMAB
     Indication: Acute myeloid leukaemia
     Dosage: 1 MILLIGRAM/KILOGRAM, UNSPECIFIED FREQUENCY
     Route: 042
     Dates: start: 20230723, end: 20230723
  8. MAGROLIMAB [Suspect]
     Active Substance: MAGROLIMAB
     Dosage: 70 MILLIGRAM, UNSPECIFIED FREQUENCY
     Route: 042
     Dates: start: 20230723, end: 20230723
  9. BECLOMETHASONE\FORMOTEROL [Suspect]
     Active Substance: BECLOMETHASONE\FORMOTEROL
     Indication: Product used for unknown indication
     Dosage: UNSPECIFIED DOSE AND FREQUENCY
     Route: 065
  10. FOLIC ACID [Suspect]
     Active Substance: FOLIC ACID
     Indication: Product used for unknown indication
     Dosage: UNSPECIFIED DOSE AND FREQUENCY
     Route: 065
  11. CALCIUM [Suspect]
     Active Substance: CALCIUM
     Indication: Product used for unknown indication
     Dosage: UNSPECIFIED DOSE AND FREQUENCY
     Route: 065
  12. POLYETHYLENE GLYCOLS [Concomitant]
     Active Substance: POLYETHYLENE GLYCOLS
     Indication: Product used for unknown indication
     Dosage: AT AN UNSPECIFIED DOSE AND FREQUENCY
     Route: 065
     Dates: start: 20230723
  13. MONTELUKAST [Concomitant]
     Active Substance: MONTELUKAST SODIUM
     Indication: Product used for unknown indication
     Dosage: UNSPECIFIED DOSE AND FREQUENCY
     Route: 065
     Dates: start: 20230720
  14. ENOXAPARIN [Concomitant]
     Active Substance: ENOXAPARIN
     Indication: Product used for unknown indication
     Dosage: UNK
     Route: 065
     Dates: start: 20230720
  15. CALCIUM CARBONATE\CHOLECALCIFEROL [Concomitant]
     Active Substance: CALCIUM CARBONATE\CHOLECALCIFEROL
     Indication: Product used for unknown indication
     Dosage: UNSPECIFIED DOSE AND FREQUENCY
     Route: 065
     Dates: start: 20230720
  16. ACETAMINOPHEN [Concomitant]
     Active Substance: ACETAMINOPHEN
     Indication: Product used for unknown indication
     Dosage: UNSPECIFIED DOSE AND FREQUENCY
     Route: 065
  17. OMEPRAZOLE [Concomitant]
     Active Substance: OMEPRAZOLE
     Indication: Product used for unknown indication
     Dosage: UNK
     Route: 065
     Dates: start: 20230720

REACTIONS (1)
  - Hallucination [Recovered/Resolved]

NARRATIVE: CASE EVENT DATE: 20230723
